FAERS Safety Report 5500225-8 (Version None)
Quarter: 2007Q4

REPORT INFORMATION
  Report Type: 
  Country: None (occurrence: None)
  Receive Date: 20071029
  Receipt Date: 20071022
  Transmission Date: 20080405
  Serious: Yes (Other)
  Sender: FDA-Public Use
  Company Number: US-JNJFOC-20071005816

PATIENT
  Sex: Female

DRUGS (1)
  1. DOXORUBICIN HCL [Suspect]
     Indication: OVARIAN CANCER RECURRENT
     Route: 042

REACTIONS (4)
  - OEDEMA PERIPHERAL [None]
  - SKIN CHAPPED [None]
  - SKIN DISCOLOURATION [None]
  - SKIN EXFOLIATION [None]
